FAERS Safety Report 4419394-6 (Version None)
Quarter: 2004Q3

REPORT INFORMATION
  Report Type: 
  Country: None (occurrence: None)
  Receive Date: 20040809
  Receipt Date: 20040123
  Transmission Date: 20050211
  Serious: No
  Sender: FDA-Public Use
  Company Number: US-GLAXOSMITHKLINE-A0495056A

PATIENT
  Age: 83 Year
  Sex: Female

DRUGS (2)
  1. PAXIL [Suspect]
     Route: 048
  2. CHEMOTHERAPY [Concomitant]

REACTIONS (1)
  - VISUAL DISTURBANCE [None]
